FAERS Safety Report 14923526 (Version 1)
Quarter: 2018Q2

REPORT INFORMATION
  Report Type: Spontaneous
  Country: JP (occurrence: JP)
  Receive Date: 20180522
  Receipt Date: 20180522
  Transmission Date: 20180711
  Serious: Yes (Other)
  Sender: FDA-Public Use
  Company Number: JP-ELI_LILLY_AND_COMPANY-JP201805003657

PATIENT
  Age: 55 Year
  Sex: Male
  Weight: 55 kg

DRUGS (2)
  1. CYRAMZA [Suspect]
     Active Substance: RAMUCIRUMAB
     Indication: OESOPHAGEAL ADENOCARCINOMA
     Route: 042
  2. PACLITAXEL. [Suspect]
     Active Substance: PACLITAXEL
     Indication: OESOPHAGEAL ADENOCARCINOMA
     Route: 042

REACTIONS (4)
  - Febrile neutropenia [Unknown]
  - Pneumonia aspiration [Recovering/Resolving]
  - Decreased appetite [Unknown]
  - Alopecia [Unknown]
